FAERS Safety Report 8764892 (Version 2)
Quarter: 2013Q1

REPORT INFORMATION
  Report Type: Spontaneous
  Country: US (occurrence: US)
  Receive Date: 20120901
  Receipt Date: 20130311
  Transmission Date: 20140127
  Serious: No
  Sender: FDA-Public Use
  Company Number: US-009507513-1208USA012351

PATIENT
  Age: 47 Year
  Sex: Female

DRUGS (3)
  1. TEMODAR [Suspect]
     Indication: OLIGODENDROGLIOMA
     Dosage: UNK
     Dates: start: 201202, end: 20120827
  2. ZOFRAN [Concomitant]
     Dosage: UNK
  3. KEPPRA [Concomitant]
     Dosage: UNK

REACTIONS (5)
  - Insomnia [Recovering/Resolving]
  - Pruritus generalised [Recovering/Resolving]
  - Dysgeusia [Recovering/Resolving]
  - Diarrhoea [Recovering/Resolving]
  - Decreased appetite [Recovering/Resolving]
